FAERS Safety Report 6426526-7 (Version None)
Quarter: 2009Q4

REPORT INFORMATION
  Report Type: 
  Country: None (occurrence: None)
  Receive Date: 20091104
  Receipt Date: 20091026
  Transmission Date: 20100525
  Serious: Yes (Other)
  Sender: FDA-Public Use
  Company Number: FR-TYCO HEALTHCARE/MALLINCKRODT-T200901963

PATIENT
  Sex: Female

DRUGS (2)
  1. OPTIRAY 350 [Suspect]
     Dosage: UNK
     Route: 065
     Dates: start: 20090623, end: 20090623
  2. MICARDIS [Concomitant]

REACTIONS (2)
  - EYELID OEDEMA [None]
  - RASH GENERALISED [None]
